FAERS Safety Report 7980329-0 (Version None)
Quarter: 2011Q4

REPORT INFORMATION
  Report Type: 
  Country: None (occurrence: None)
  Receive Date: 20111214
  Receipt Date: 20111206
  Transmission Date: 20120403
  Serious: Yes (Other)
  Sender: FDA-Public Use
  Company Number: IT-CEPHALON-2011005320

PATIENT
  Sex: Male

DRUGS (7)
  1. FENTANYL CITRATE [Suspect]
     Route: 002
     Dates: start: 20110624, end: 20110713
  2. HYDROMORPHONE HCL [Concomitant]
     Route: 048
     Dates: start: 20110513, end: 20110713
  3. SERACTIL [Concomitant]
     Route: 048
     Dates: start: 20110712, end: 20110713
  4. ARTROSILENE [Concomitant]
     Dates: start: 20110310, end: 20110713
  5. TACHIDOL [Concomitant]
     Dates: start: 20110401, end: 20110713
  6. OXYCONTIN [Concomitant]
     Dates: start: 20110616, end: 20110713
  7. FRAGMIN [Concomitant]
     Route: 058
     Dates: start: 20110121, end: 20110713

REACTIONS (5)
  - BLOOD PRESSURE INCREASED [None]
  - HEART RATE INCREASED [None]
  - HUNGER [None]
  - COLD SWEAT [None]
  - DYSPNOEA [None]
